FAERS Safety Report 5632177-4 (Version None)
Quarter: 2008Q1

REPORT INFORMATION
  Report Type: 
  Country: None (occurrence: None)
  Receive Date: 20080220
  Receipt Date: 20080206
  Transmission Date: 20080703
  Serious: Yes (Hospitalization, Other)
  Sender: FDA-Public Use
  Company Number: FR-TYCO HEALTHCARE/MALLINCKRODT-T200800156

PATIENT

DRUGS (4)
  1. TRAMADOL HCL [Suspect]
     Dosage: UNK, UNK
  2. HYDROXYZINE [Suspect]
     Dosage: UNK, UNK
  3. GABAPENTIN [Suspect]
     Dosage: UNK, UNK
  4. CLONAZEPAM [Suspect]
     Dosage: UNK, UNK

REACTIONS (3)
  - CARDIAC ARREST [None]
  - OVERDOSE [None]
  - SHOCK [None]
